FAERS Safety Report 9671918 (Version 2)
Quarter: 2013Q4

REPORT INFORMATION
  Report Type: Other
  Country: US (occurrence: US)
  Receive Date: 20131106
  Receipt Date: 20131209
  Transmission Date: 20140711
  Serious: Yes (Hospitalization)
  Sender: FDA-Public Use
  Company Number: US-SHIRE-ALL1-2013-07440

PATIENT
  Age: 49 Year
  Sex: Male
  Weight: 69.39 kg

DRUGS (1)
  1. PENTASA [Suspect]
     Indication: CROHN^S DISEASE
     Dosage: 1000 MG (TWO 500 MG), 4X/DAY:QID
     Route: 048
     Dates: start: 2004, end: 20131023

REACTIONS (3)
  - Crohn^s disease [Recovering/Resolving]
  - Drug ineffective for unapproved indication [Recovered/Resolved]
  - Off label use [Recovered/Resolved]
